FAERS Safety Report 8004435-X (Version None)
Quarter: 2011Q4

REPORT INFORMATION
  Report Type: 
  Country: None (occurrence: None)
  Receive Date: 20111221
  Receipt Date: 20111221
  Transmission Date: 20120403
  Serious: Yes (Life-Threatening)
  Sender: FDA-Public Use
  Company Number: None

PATIENT
  Sex: Female
  Weight: 131.5431 kg

DRUGS (1)
  1. ACTOS [Suspect]
     Indication: DIABETES MELLITUS
     Dosage: 1/2 TAB (30MG) TWICE DAILY BY MOUTH
     Route: 048
     Dates: start: 20110228, end: 20111001

REACTIONS (3)
  - MALAISE [None]
  - ARRHYTHMIA [None]
  - TACHYCARDIA [None]
